FAERS Safety Report 9074033 (Version 1)
Quarter: 2013Q1

REPORT INFORMATION
  Report Type: Report from Study
  Country: US (occurrence: US)
  Receive Date: 20130128
  Receipt Date: 20130128
  Transmission Date: 20140127
  Serious: No
  Sender: FDA-Public Use
  Company Number: US-ABBOTT-12P-163-0917955-00

PATIENT
  Sex: Female

DRUGS (1)
  1. HUMIRA 40 MG/0.8 ML PEN [Suspect]
     Indication: RHEUMATOID ARTHRITIS
     Route: 058
     Dates: start: 200912

REACTIONS (6)
  - Sinus congestion [Unknown]
  - Rash [Unknown]
  - Rash papular [Unknown]
  - Sinus disorder [Unknown]
  - Hypersensitivity [Unknown]
  - Rhinorrhoea [Unknown]
